FAERS Safety Report 10014711 (Version 1)
Quarter: 2014Q1

REPORT INFORMATION
  Report Type: Spontaneous
  Country: US (occurrence: US)
  Receive Date: 20140317
  Receipt Date: 20140317
  Transmission Date: 20141002
  Serious: Yes (Other)
  Sender: FDA-Public Use
  Company Number: US-ROCHE-1364857

PATIENT
  Sex: Female

DRUGS (12)
  1. XOLAIR [Suspect]
     Indication: PRODUCT USED FOR UNKNOWN INDICATION
     Route: 065
     Dates: start: 201307
  2. XOLAIR [Suspect]
     Route: 065
     Dates: start: 201312
  3. XOLAIR [Suspect]
     Route: 065
     Dates: start: 201401
  4. XOLAIR [Suspect]
     Route: 065
     Dates: start: 201402
  5. XOLAIR [Suspect]
     Route: 065
  6. SYNTHROID [Concomitant]
  7. ZYRTEC [Concomitant]
  8. B COMPLEX [Concomitant]
  9. SINGULAIR [Concomitant]
  10. ADVAIR [Concomitant]
  11. CELEXA (UNITED STATES) [Concomitant]
  12. IMDUR [Concomitant]

REACTIONS (9)
  - Anaphylactic reaction [Unknown]
  - Blood cortisol decreased [Unknown]
  - Sensitivity to weather change [Unknown]
  - Adrenal disorder [Unknown]
  - Adrenal insufficiency [Unknown]
  - Bronchitis chronic [Unknown]
  - Nasopharyngitis [Unknown]
  - Sinusitis [Unknown]
  - Fatigue [Unknown]
